FAERS Safety Report 5869700-0 (Version None)
Quarter: 2008Q3

REPORT INFORMATION
  Report Type: 
  Country: None (occurrence: None)
  Receive Date: 20080829
  Receipt Date: 20080425
  Transmission Date: 20090109
  Serious: Yes (Death)
  Sender: FDA-Public Use
  Company Number: US023371

PATIENT
  Age: 51 Year
  Sex: Male

DRUGS (2)
  1. FENTORA [Suspect]
     Indication: CANCER PAIN
     Dosage: 400 UG BUCCAL
     Route: 002
  2. OPIOID [Concomitant]

REACTIONS (2)
  - DISEASE PROGRESSION [None]
  - NEOPLASM MALIGNANT [None]
